FAERS Safety Report 18753434 (Version 6)
Quarter: 2023Q4

REPORT INFORMATION
  Report Type: Spontaneous
  Country: FR (occurrence: FR)
  Receive Date: 20210118
  Receipt Date: 20231117
  Transmission Date: 20240110
  Serious: Yes (Other)
  Sender: FDA-Public Use
  Company Number: FR-AFSSAPS-AN20210007

PATIENT
  Age: 57 Year
  Sex: Female
  Weight: 50 kg

DRUGS (14)
  1. CETIRIZINE HYDROCHLORIDE [Suspect]
     Active Substance: CETIRIZINE HYDROCHLORIDE
     Indication: Prophylaxis of nausea and vomiting
     Dosage: 1 CYCLICAL
     Route: 048
  2. TAXOL [Suspect]
     Active Substance: PACLITAXEL
     Indication: Breast cancer metastatic
     Dosage: CYCLICAL
     Route: 042
     Dates: start: 20200309, end: 20200825
  3. PREDNISOLONE [Suspect]
     Active Substance: PREDNISOLONE
     Indication: Prophylaxis of nausea and vomiting
     Dosage: CYCLICAL
     Route: 048
  4. SKENAN [Suspect]
     Active Substance: MORPHINE SULFATE
     Indication: Pain
     Dosage: 1-0-2 MORPHINE (SULFATE DE)
     Route: 048
  5. CAPECITABINE [Suspect]
     Active Substance: CAPECITABINE
     Indication: Breast cancer metastatic
     Dosage: 500 MG: 2-0-2 5D/7, 2S/3
     Route: 065
     Dates: start: 2019, end: 20200908
  6. CAPECITABINE [Suspect]
     Active Substance: CAPECITABINE
     Route: 048
     Dates: start: 2019, end: 20200908
  7. CIMETIDINE [Suspect]
     Active Substance: CIMETIDINE
     Indication: Prophylaxis of nausea and vomiting
     Dosage: CYCLICAL, 200MG/CURE
     Route: 048
  8. OMEPRAZOLE [Suspect]
     Active Substance: OMEPRAZOLE
     Indication: Gastrooesophageal reflux disease
     Route: 048
  9. PERTUZUMAB [Suspect]
     Active Substance: PERTUZUMAB
     Indication: Breast cancer metastatic
     Dosage: CYCLICAL
     Route: 042
     Dates: start: 20200302
  10. MORPHINE SULFATE [Suspect]
     Active Substance: MORPHINE SULFATE
     Indication: Pain
     Dosage: SULFATE DE MORPHINE
     Route: 048
  11. MORPHINE SULFATE [Suspect]
     Active Substance: MORPHINE SULFATE
     Dosage: 5 MG AS NEEDED
     Route: 065
  12. TRASTUZUMAB [Suspect]
     Active Substance: TRASTUZUMAB
     Indication: Breast cancer metastatic
     Dosage: CYCLICAL
     Route: 042
     Dates: start: 20200302
  13. TOUJEO [Suspect]
     Active Substance: INSULIN GLARGINE
     Indication: Insulin-requiring type 2 diabetes mellitus
     Dosage: INSULINE GLARGINE (BACTERIE/ESCHERICHIA COLI)
     Route: 058
  14. SKENAN [Suspect]
     Active Substance: MORPHINE SULFATE
     Indication: Product used for unknown indication
     Dosage: 10MG 1-0-2  ALWAYS 12UI/D CHEMOTHERAPY PROTOCOL
     Route: 065

REACTIONS (2)
  - Visual acuity reduced [Recovered/Resolved]
  - Keratitis [Recovered/Resolved]

NARRATIVE: CASE EVENT DATE: 20200601
